FAERS Safety Report 9474273 (Version 4)
Quarter: 2014Q2

REPORT INFORMATION
  Report Type: Report from Study
  Country: IT (occurrence: IT)
  Receive Date: 20130823
  Receipt Date: 20140513
  Transmission Date: 20141212
  Serious: Yes (Hospitalization)
  Sender: FDA-Public Use
  Company Number: PHHY2013IT091481

PATIENT
  Age: 69 Year
  Sex: Male
  Weight: 87 kg

DRUGS (5)
  1. AMN107 [Suspect]
     Indication: CHRONIC MYELOID LEUKAEMIA
     Dosage: 300 MG, BID
     Route: 048
     Dates: start: 20101130
  2. PERINDOPRIL [Concomitant]
     Dosage: 4 MG, DAILY
     Dates: start: 1995
  3. PRAVASTATIN [Concomitant]
     Indication: HYPERCHOLESTEROLAEMIA
     Dosage: 40 MG, DAILY
     Dates: start: 1995
  4. HEPARIN [Concomitant]
     Dosage: 8000 IU, BID
  5. ASA [Concomitant]
     Indication: ACUTE MYOCARDIAL INFARCTION
     Dosage: 100 MG, UNK
     Dates: start: 1995

REACTIONS (1)
  - Angina pectoris [Recovering/Resolving]
